FAERS Safety Report 13041980 (Version 1)
Quarter: 2016Q4

REPORT INFORMATION
  Report Type: Spontaneous
  Country: US (occurrence: US)
  Receive Date: 20161219
  Receipt Date: 20161219
  Transmission Date: 20170207
  Serious: Yes (Other)
  Sender: FDA-Public Use
  Company Number: US-ROCHE-1079352

PATIENT
  Age: 74 Year
  Sex: Male

DRUGS (1)
  1. ZELBORAF [Suspect]
     Active Substance: VEMURAFENIB
     Indication: MALIGNANT MELANOMA
     Route: 048
     Dates: start: 20120522

REACTIONS (5)
  - Rash [Unknown]
  - Decreased appetite [Unknown]
  - Sunburn [Recovering/Resolving]
  - Pyrexia [Unknown]
  - Blister [Unknown]

NARRATIVE: CASE EVENT DATE: 20120605
